FAERS Safety Report 8046310-0 (Version None)
Quarter: 2012Q1

REPORT INFORMATION
  Report Type: 
  Country: None (occurrence: None)
  Receive Date: 20120113
  Receipt Date: 20120106
  Transmission Date: 20120608
  Serious: No
  Sender: FDA-Public Use
  Company Number: US-PFIZER INC-2012006024

PATIENT

DRUGS (2)
  1. FENTANYL-100 [Interacting]
     Dosage: UNK
  2. ZYVOX [Suspect]
     Dosage: UNK
     Route: 048

REACTIONS (1)
  - DRUG INTERACTION [None]
